FAERS Safety Report 6256957-X (Version None)
Quarter: 2009Q3

REPORT INFORMATION
  Report Type: 
  Country: None (occurrence: None)
  Receive Date: 20090701
  Receipt Date: 20090701
  Transmission Date: 20100115
  Serious: Yes (Hospitalization)
  Sender: FDA-Public Use
  Company Number: None

PATIENT
  Sex: Female
  Weight: 65 kg

DRUGS (1)
  1. TAXOTERE [Suspect]
     Dosage: 20 ML
     Dates: end: 20090622

REACTIONS (3)
  - BACK PAIN [None]
  - INCISION SITE PAIN [None]
  - MALAISE [None]
